FAERS Safety Report 19559464 (Version 5)
Quarter: 2022Q1

REPORT INFORMATION
  Report Type: Report from Study
  Country: CO (occurrence: CO)
  Receive Date: 20210716
  Receipt Date: 20220328
  Transmission Date: 20220423
  Serious: Yes (Other)
  Sender: FDA-Public Use
  Company Number: CO-ABBVIE-21K-036-3992548-00

PATIENT
  Age: 57 Year
  Sex: Female
  Weight: 74 kg

DRUGS (4)
  1. HUMIRA [Suspect]
     Active Substance: ADALIMUMAB
     Indication: Psoriasis
     Route: 058
     Dates: start: 20100421
  2. HUMIRA [Suspect]
     Active Substance: ADALIMUMAB
     Indication: Psoriasis
     Route: 058
     Dates: end: 20210618
  3. HUMIRA [Suspect]
     Active Substance: ADALIMUMAB
     Route: 058
     Dates: end: 20220228
  4. ADALIMUMAB [Suspect]
     Active Substance: ADALIMUMAB
     Indication: Psoriasis
     Route: 065
     Dates: start: 20220315

REACTIONS (17)
  - Choking [Recovering/Resolving]
  - Calcinosis [Recovering/Resolving]
  - Granuloma [Recovering/Resolving]
  - Weight decreased [Recovering/Resolving]
  - Discouragement [Recovered/Resolved]
  - Oropharyngeal discomfort [Recovered/Resolved]
  - Sneezing [Recovered/Resolved]
  - Fatigue [Recovering/Resolving]
  - Exposure to SARS-CoV-2 [Unknown]
  - Skin test positive [Not Recovered/Not Resolved]
  - Anxiety [Recovering/Resolving]
  - Pruritus [Recovering/Resolving]
  - Blood test abnormal [Not Recovered/Not Resolved]
  - Unevaluable event [Recovering/Resolving]
  - COVID-19 [Recovered/Resolved]
  - Fungal infection [Recovering/Resolving]
  - Back pain [Recovered/Resolved]

NARRATIVE: CASE EVENT DATE: 20210601
